FAERS Safety Report 5960501-1 (Version None)
Quarter: 2008Q4

REPORT INFORMATION
  Report Type: 
  Country: None (occurrence: None)
  Receive Date: 20081120
  Receipt Date: 20080221
  Transmission Date: 20090506
  Serious: No
  Sender: FDA-Public Use
  Company Number: US-ABBOTT-08P-163-0439471-00

PATIENT
  Sex: Female
  Weight: 61.29 kg

DRUGS (1)
  1. BIAXIN [Suspect]
     Indication: SINUSITIS
     Route: 048
     Dates: start: 20080213, end: 20080218

REACTIONS (3)
  - ANXIETY [None]
  - NIGHT SWEATS [None]
  - NIGHTMARE [None]
